FAERS Safety Report 19248357 (Version 3)
Quarter: 2021Q4

REPORT INFORMATION
  Report Type: Spontaneous
  Country: US (occurrence: US)
  Receive Date: 20210512
  Receipt Date: 20211215
  Transmission Date: 20220303
  Serious: No
  Sender: FDA-Public Use
  Company Number: US-PFIZER INC-2021470060

PATIENT
  Age: 55 Year
  Sex: Female

DRUGS (5)
  1. XELJANZ XR [Suspect]
     Active Substance: TOFACITINIB CITRATE
     Dosage: 11 MG
     Dates: start: 20210323
  2. XELJANZ XR [Suspect]
     Active Substance: TOFACITINIB CITRATE
     Dosage: 11 MG
     Dates: start: 20210502
  3. XELJANZ XR [Suspect]
     Active Substance: TOFACITINIB CITRATE
     Dosage: 11 MG
     Dates: start: 20210801, end: 20210901
  4. XELJANZ XR [Suspect]
     Active Substance: TOFACITINIB CITRATE
     Dosage: 11 MG
     Dates: start: 20210322
  5. TIZANIDINE [Concomitant]
     Active Substance: TIZANIDINE
     Indication: Back pain
     Dosage: UNK

REACTIONS (8)
  - Rash [Recovered/Resolved]
  - Pain in extremity [Unknown]
  - Contusion [Unknown]
  - Weight increased [Unknown]
  - Alopecia [Unknown]
  - Fall [Unknown]
  - Loss of personal independence in daily activities [Unknown]
  - Diverticulum [Unknown]

NARRATIVE: CASE EVENT DATE: 20210501
